FAERS Safety Report 5096900-2 (Version None)
Quarter: 2006Q3

REPORT INFORMATION
  Report Type: 
  Country: None (occurrence: None)
  Receive Date: 20060901
  Receipt Date: 20060901
  Transmission Date: 20061208
  Serious: Yes (Other)
  Sender: FDA-Public Use
  Company Number: None

PATIENT
  Age: 48 Year
  Sex: Female
  Weight: 65.7716 kg

DRUGS (2)
  1. CYMBALTA [Suspect]
  2. IMITREX [Suspect]

REACTIONS (9)
  - CEREBROVASCULAR ACCIDENT [None]
  - CHEST PAIN [None]
  - DRUG INTERACTION [None]
  - HALLUCINATION [None]
  - HEADACHE [None]
  - MANIA [None]
  - MIGRAINE [None]
  - MOVEMENT DISORDER [None]
  - PAIN IN EXTREMITY [None]
